FAERS Safety Report 9031489 (Version 1)
Quarter: 2013Q1

REPORT INFORMATION
  Report Type: Spontaneous
  Country: US (occurrence: US)
  Receive Date: 20130124
  Receipt Date: 20130124
  Transmission Date: 20140127
  Serious: Yes (Hospitalization)
  Sender: FDA-Public Use
  Company Number: US-ROCHE-1180649

PATIENT
  Sex: 0

DRUGS (4)
  1. NAPROSYN [Suspect]
     Indication: PRODUCT USED FOR UNKNOWN INDICATION
     Route: 065
  2. TYLENOL [Concomitant]
  3. TRAMADOL [Concomitant]
  4. NAPROXEN [Concomitant]

REACTIONS (5)
  - Pain [Unknown]
  - Mechanical ventilation [Unknown]
  - Loss of consciousness [Unknown]
  - Back disorder [Unknown]
  - Angina pectoris [Unknown]
